FAERS Safety Report 10371401 (Version 1)
Quarter: 2014Q3

REPORT INFORMATION
  Report Type: Spontaneous
  Country: CA (occurrence: None)
  Receive Date: 20140806
  Receipt Date: 20140806
  Transmission Date: 20150326
  Serious: Yes (Other)
  Sender: FDA-Public Use
  Company Number: BD-2014-0049

PATIENT
  Age: 34 Year

DRUGS (9)
  1. LIDOCAINE (LIDOCAINE) [Concomitant]
     Active Substance: LIDOCAINE
  2. FENTANYL (FENTANYL) [Concomitant]
     Active Substance: FENTANYL
  3. ONDANSETRON. [Suspect]
     Active Substance: ONDANSETRON
     Indication: PROPHYLAXIS OF NAUSEA AND VOMITING
     Route: 042
  4. SUCCINYLCHOLINE [Concomitant]
     Active Substance: SUCCINYLCHOLINE
  5. NITROUS OXIDE. [Concomitant]
     Active Substance: NITROUS OXIDE
  6. DESFLURANE (DESFLURANCE) [Concomitant]
  7. METOCLOPRAMIDE. [Suspect]
     Active Substance: METOCLOPRAMIDE
     Indication: PRODUCT USED FOR UNKNOWN INDICATION
  8. CEFAZOLIN (CEFAZOLIN) [Concomitant]
     Active Substance: CEFAZOLIN
  9. PROPOFOL (PROPOFOL) [Concomitant]
     Active Substance: PROPOFOL

REACTIONS (4)
  - Bradycardia [None]
  - Nodal rhythm [None]
  - Ventricular tachycardia [None]
  - Supraventricular tachycardia [None]
